FAERS Safety Report 22015064 (Version 2)
Quarter: 2023Q2

REPORT INFORMATION
  Report Type: Spontaneous
  Country: US (occurrence: US)
  Receive Date: 20230221
  Receipt Date: 20230403
  Transmission Date: 20230722
  Serious: No
  Sender: FDA-Public Use
  Company Number: US-SANOFI-01495642

PATIENT
  Age: 73 Year
  Sex: Male

DRUGS (3)
  1. SOLIQUA 100/33 [Suspect]
     Active Substance: INSULIN GLARGINE\LIXISENATIDE
     Indication: Diabetes mellitus
     Dosage: 35 U, BID
     Route: 058
  2. SOLIQUA 100/33 [Suspect]
     Active Substance: INSULIN GLARGINE\LIXISENATIDE
     Dosage: 30 IU, BID
  3. VICTOZA [Concomitant]
     Active Substance: LIRAGLUTIDE
     Dosage: UNK

REACTIONS (3)
  - Blood glucose increased [Unknown]
  - Accidental exposure to product [Unknown]
  - Inappropriate schedule of product administration [Unknown]
